FAERS Safety Report 6848457-0 (Version None)
Quarter: 2010Q3

REPORT INFORMATION
  Report Type: 
  Country: None (occurrence: None)
  Receive Date: 20100716
  Receipt Date: 20100706
  Transmission Date: 20110219
  Serious: Yes (Other)
  Sender: FDA-Public Use
  Company Number: US-JNJFOC-20100502091

PATIENT
  Sex: Female
  Weight: 68.49 kg

DRUGS (9)
  1. REMICADE [Suspect]
     Indication: CROHN'S DISEASE
     Route: 042
  2. REMICADE [Suspect]
     Dosage: 4 VIALS
     Route: 042
  3. REMICADE [Suspect]
     Route: 042
  4. MERCAPTOPURINE [Concomitant]
     Dosage: DOSE WAS DECREASED IN FEB-2010
  5. OMEPRAZOLE [Concomitant]
  6. ZYRTEC [Concomitant]
  7. PROBIOTICS [Concomitant]
  8. VITAMIN TAB [Concomitant]
  9. AGENT FOR CONSTIPATION [Concomitant]

REACTIONS (3)
  - GALLBLADDER DISORDER [None]
  - PELVIC PAIN [None]
  - THROMBOCYTOPENIA [None]
